FAERS Safety Report 9695792 (Version 1)
Quarter: 2013Q4

REPORT INFORMATION
  Report Type: Spontaneous
  Country: US (occurrence: None)
  Receive Date: 20131118
  Receipt Date: 20131118
  Transmission Date: 20140711
  Serious: Yes (Other)
  Sender: FDA-Public Use
  Company Number: None

PATIENT
  Age: 41 Year
  Sex: Female
  Weight: 76 kg

DRUGS (1)
  1. ISOVUE [Suspect]
     Indication: COMPUTERISED TOMOGRAM
     Route: 042
     Dates: start: 20131111

REACTIONS (11)
  - Rash [None]
  - Eye swelling [None]
  - Headache [None]
  - Nausea [None]
  - Pharyngeal oedema [None]
  - Back pain [None]
  - Hypoaesthesia [None]
  - Injection site hypoaesthesia [None]
  - Skin disorder [None]
  - Urticaria [None]
  - Feeling hot [None]
